FAERS Safety Report 5676709-9 (Version None)
Quarter: 2008Q2

REPORT INFORMATION
  Report Type: 
  Country: None (occurrence: None)
  Receive Date: 20080310
  Receipt Date: 20071114
  Transmission Date: 20081010
  Serious: Yes (Hospitalization)
  Sender: FDA-Public Use
  Company Number: M7001-02885-SPO-US

PATIENT
  Sex: Female

DRUGS (1)
  1. TARGRETIN [Suspect]
     Dosage: 4 PILLS PER DAY, 4 IN 1 D, ORAL
     Route: 048
     Dates: start: 20070901

REACTIONS (1)
  - PULMONARY OEDEMA [None]
